FAERS Safety Report 18236130 (Version 5)
Quarter: 2022Q1

REPORT INFORMATION
  Report Type: Spontaneous
  Country: US (occurrence: US)
  Receive Date: 20200906
  Receipt Date: 20220321
  Transmission Date: 20220423
  Serious: No
  Sender: FDA-Public Use
  Company Number: US-DECIPHERA PHARMACEUTICALS LLC-2020-US-000313

PATIENT
  Age: 73 Year
  Sex: Female

DRUGS (4)
  1. QINLOCK [Suspect]
     Active Substance: RIPRETINIB
     Indication: Gastrointestinal stromal tumour
     Dosage: 150 MILLIGRAM, QD
     Route: 048
     Dates: start: 20200721
  2. QINLOCK [Suspect]
     Active Substance: RIPRETINIB
     Dosage: 100 MILLIGRAM, QD
     Route: 048
  3. QINLOCK [Suspect]
     Active Substance: RIPRETINIB
     Dosage: 150 UNK
     Route: 048
  4. QINLOCK [Suspect]
     Active Substance: RIPRETINIB
     Dosage: 100 MILLIGRAM, QD
     Route: 048

REACTIONS (5)
  - Feeling abnormal [Recovered/Resolved]
  - Hypersomnia [Recovered/Resolved]
  - Crying [Recovered/Resolved]
  - Dizziness [Recovered/Resolved]
  - Underdose [Unknown]

NARRATIVE: CASE EVENT DATE: 20200727
